FAERS Safety Report 4492973-6 (Version None)
Quarter: 2004Q3

REPORT INFORMATION
  Report Type: 
  Country: None (occurrence: None)
  Receive Date: 20040921
  Receipt Date: 20040304
  Transmission Date: 20050211
  Serious: Yes (Hospitalization)
  Sender: FDA-Public Use
  Company Number: 163-20785-04030178 (0)

PATIENT
  Age: 57 Year
  Sex: Male
  Weight: 104 kg

DRUGS (16)
  1. THALOMID [Suspect]
     Indication: METASTATIC MALIGNANT MELANOMA
     Dosage: 200 MG, QD, PO
     Route: 048
     Dates: start: 20040123, end: 20040226
  2. TEMODAR [Suspect]
     Indication: METASTATIC MALIGNANT MELANOMA
     Dosage: 160 MG, QD, PO
     Route: 048
     Dates: start: 20040123, end: 20040221
  3. COMPAZINE (PROCHLORPERAZINE EDISYLATE) (TABLETS) [Concomitant]
  4. ATIVAN [Concomitant]
  5. DECADRON [Concomitant]
  6. PROTONIX (PANTOPRAZOLE) (UNKNOWN) [Concomitant]
  7. TYLENOL [Concomitant]
  8. DILANTIN (PHENYTOIN SODIUM) (TABLETS) [Concomitant]
  9. LORAZEPAM (LORAZEPAM) (TABLETS) [Concomitant]
  10. OXYCODONE (OXYCODONE) (TABLETS) [Concomitant]
  11. OXYCONTIN (OXYCODONE HYDROCHLORIDE) (TABLETS) [Concomitant]
  12. SENNA C (SENNA) (TABLETS) [Concomitant]
  13. CODEINE (CODEINE PHOSPHATE) (TABLETS) [Concomitant]
  14. KEPPRA [Concomitant]
  15. COLACE (DOCUSATE SODIUM) [Concomitant]
  16. AMBIEN [Concomitant]

REACTIONS (3)
  - DEEP VEIN THROMBOSIS [None]
  - DISEASE PROGRESSION [None]
  - DYSPNOEA [None]
